FAERS Safety Report 23132386 (Version 7)
Quarter: 2024Q1

REPORT INFORMATION
  Report Type: Spontaneous
  Country: US (occurrence: US)
  Receive Date: 20231101
  Receipt Date: 20240112
  Transmission Date: 20240410
  Serious: No
  Sender: FDA-Public Use
  Company Number: US-JNJFOC-20231072436

PATIENT
  Sex: Male

DRUGS (5)
  1. UPTRAVI [Suspect]
     Active Substance: SELEXIPAG
     Indication: Product used for unknown indication
     Route: 048
  2. AMBRISENTAN [Suspect]
     Active Substance: AMBRISENTAN
     Indication: Pulmonary arterial hypertension
     Route: 048
     Dates: start: 20220401
  3. AMBRISENTAN [Suspect]
     Active Substance: AMBRISENTAN
     Indication: Pulmonary hypertension
  4. TYVASO [Concomitant]
     Active Substance: TREPROSTINIL
  5. TADALAFIL [Concomitant]
     Active Substance: TADALAFIL

REACTIONS (6)
  - Diarrhoea [Recovering/Resolving]
  - Flushing [Recovering/Resolving]
  - Hot flush [Not Recovered/Not Resolved]
  - Headache [Recovering/Resolving]
  - Pain in jaw [Recovering/Resolving]
  - Decreased appetite [Not Recovered/Not Resolved]
